FAERS Safety Report 9908427 (Version 1)
Quarter: 2014Q1

REPORT INFORMATION
  Report Type: Report from Study
  Country: US (occurrence: US)
  Receive Date: 20140219
  Receipt Date: 20140219
  Transmission Date: 20141002
  Serious: Yes (Hospitalization)
  Sender: FDA-Public Use
  Company Number: US-ROCHE-1324613

PATIENT
  Age: 45 Year
  Sex: Female
  Weight: 266 kg

DRUGS (13)
  1. AVASTIN [Suspect]
     Indication: COLON CANCER
     Route: 042
  2. AVASTIN [Suspect]
     Route: 042
     Dates: start: 20111010
  3. XELODA [Suspect]
     Indication: COLON CANCER
     Route: 048
     Dates: start: 20110808
  4. XELODA [Suspect]
     Route: 048
  5. ALOXI [Concomitant]
     Route: 042
  6. CPT-11 [Concomitant]
     Indication: COLON CANCER
     Route: 042
  7. CPT-11 [Concomitant]
     Route: 042
  8. PROCRIT [Concomitant]
     Route: 058
  9. PROCRIT [Concomitant]
     Route: 058
  10. ATROPINE [Concomitant]
     Indication: ABDOMINAL PAIN
     Route: 042
  11. NEUPOGEN [Concomitant]
     Route: 065
  12. OXALIPLATIN [Concomitant]
     Route: 042
  13. DEXAMETHASONE [Concomitant]
     Route: 040

REACTIONS (19)
  - Food poisoning [Unknown]
  - Anaemia [Unknown]
  - Overdose [Unknown]
  - Off label use [Unknown]
  - Cough [Unknown]
  - Rhinorrhoea [Unknown]
  - Blister [Unknown]
  - Back pain [Unknown]
  - Vaginal haemorrhage [Unknown]
  - Bone pain [Unknown]
  - Nervousness [Unknown]
  - Pain in extremity [Unknown]
  - Abdominal pain [Unknown]
  - Abdominal discomfort [Unknown]
  - Vomiting [Unknown]
  - Hyperhidrosis [Unknown]
  - Malaise [Unknown]
  - Infusion related reaction [Unknown]
  - Injection site extravasation [Unknown]
